FAERS Safety Report 13785128 (Version 2)
Quarter: 2017Q4

REPORT INFORMATION
  Report Type: Spontaneous
  Country: US (occurrence: US)
  Receive Date: 20170724
  Receipt Date: 20171024
  Transmission Date: 20180320
  Serious: No
  Sender: FDA-Public Use
  Company Number: US-IMPAX LABORATORIES, INC-2017-IPXL-01651

PATIENT
  Age: 68 Year
  Sex: Male
  Weight: 98 kg

DRUGS (5)
  1. PROPRANOLOL [Concomitant]
     Active Substance: PROPRANOLOL HYDROCHLORIDE
     Indication: PRODUCT USED FOR UNKNOWN INDICATION
     Dosage: 40 MG, UNK
     Route: 065
  2. RYTARY [Suspect]
     Active Substance: CARBIDOPA\LEVODOPA
     Indication: PARKINSON^S DISEASE
     Dosage: 36.25/145MG, 3 CAP 7AM, 2 CAP 11AM, 3 CAP 3PM, 2 CAP 7PM, 2 CAP 10:30PM FOR THE FIRST 5 DAY
     Route: 048
     Dates: start: 20170525
  3. RYTARY [Suspect]
     Active Substance: CARBIDOPA\LEVODOPA
     Dosage: 36.25/145MG 3 CAP, 5 TIMES A DAY FOR THE NEXT SET OF 5 DAYS
     Route: 048
     Dates: start: 2017
  4. RYTARY [Suspect]
     Active Substance: CARBIDOPA\LEVODOPA
     Dosage: 36.25/145MG 3 CAP 7 AM, 11AM AND 3PM, 2 CAP 7 PM AND 3 CAP 10:30 PM FOR THE NEXT 5 DAY
     Route: 048
     Dates: start: 201705
  5. OMEPRAZOLE. [Concomitant]
     Active Substance: OMEPRAZOLE
     Indication: GASTROOESOPHAGEAL REFLUX DISEASE
     Dosage: 40 MG, UNK
     Route: 065

REACTIONS (2)
  - Tremor [Not Recovered/Not Resolved]
  - Mental impairment [Recovered/Resolved]
